FAERS Safety Report 8274835-1 (Version None)
Quarter: 2012Q2

REPORT INFORMATION
  Report Type: 
  Country: None (occurrence: None)
  Receive Date: 20120411
  Receipt Date: 20120404
  Transmission Date: 20120825
  Serious: Yes (Other)
  Sender: FDA-Public Use
  Company Number: JP-JNJFOC-20120403718

PATIENT
  Sex: Female
  Weight: 43 kg

DRUGS (3)
  1. ABILIFY [Concomitant]
     Indication: DEMENTIA ALZHEIMER'S TYPE
     Route: 048
  2. YOKUKAN-SAN [Concomitant]
     Indication: DEMENTIA ALZHEIMER'S TYPE
     Route: 048
  3. GALANTAMINE HYDROBROMIDE [Suspect]
     Indication: DEMENTIA ALZHEIMER'S TYPE
     Route: 048
     Dates: start: 20120116, end: 20120302

REACTIONS (1)
  - DELUSION [None]
